FAERS Safety Report 5351092-7 (Version None)
Quarter: 2007Q2

REPORT INFORMATION
  Report Type: 
  Country: None (occurrence: None)
  Receive Date: 20070608
  Receipt Date: 20070529
  Transmission Date: 20071010
  Serious: Yes (Hospitalization)
  Sender: FDA-Public Use
  Company Number: VE-PFIZER INC-2007024974

PATIENT
  Sex: Female
  Weight: 73.5 kg

DRUGS (5)
  1. SU-011,248 [Suspect]
     Indication: RENAL CELL CARCINOMA STAGE UNSPECIFIED
     Route: 048
  2. ALL OTHER THERAPEUTIC PRODUCTS [Concomitant]
     Route: 048
     Dates: start: 20040701
  3. DIAMICRON [Concomitant]
     Route: 048
  4. TRIMEBUTINE [Concomitant]
     Route: 048
  5. FLUOCARIL [Concomitant]
     Route: 048

REACTIONS (4)
  - COORDINATION ABNORMAL [None]
  - DYSPHASIA [None]
  - HYPOTHYROIDISM [None]
  - SEPSIS [None]
